FAERS Safety Report 23631161 (Version 11)
Quarter: 2024Q4

REPORT INFORMATION
  Report Type: Report from Study
  Country: US (occurrence: US)
  Receive Date: 20240314
  Receipt Date: 20241221
  Transmission Date: 20250115
  Serious: Yes (Other)
  Sender: TAKEDA
  Company Number: US-TAKEDA-2024TUS010327

PATIENT
  Sex: Female
  Weight: 73 kg

DRUGS (22)
  1. HUMAN IMMUNOGLOBULIN G [Suspect]
     Active Substance: HUMAN IMMUNOGLOBULIN G
     Indication: Immunodeficiency common variable
     Dosage: 12 GRAM, 1/WEEK
     Dates: start: 20240119
  2. HUMAN IMMUNOGLOBULIN G [Suspect]
     Active Substance: HUMAN IMMUNOGLOBULIN G
     Dosage: 16 GRAM, 1/WEEK
  3. EPINEPHRINE [Concomitant]
     Active Substance: EPINEPHRINE
     Dosage: UNK
  4. ACETAMINOPHEN [Concomitant]
     Active Substance: ACETAMINOPHEN
     Dosage: UNK
  5. ACETAMINOPHEN\HYDROCODONE [Concomitant]
     Active Substance: ACETAMINOPHEN\HYDROCODONE
     Dosage: UNK
  6. NYSTATIN [Concomitant]
     Active Substance: NYSTATIN
     Dosage: UNK
  7. ALBUTEROL SULFATE [Concomitant]
     Active Substance: ALBUTEROL SULFATE
     Dosage: UNK
  8. LIDOCAINE [Concomitant]
     Active Substance: LIDOCAINE
     Dosage: UNK
  9. FLUTICASONE PROPIONATE [Concomitant]
     Active Substance: FLUTICASONE PROPIONATE
     Dosage: UNK
  10. ADVAIR HFA [Concomitant]
     Active Substance: FLUTICASONE PROPIONATE\SALMETEROL XINAFOATE
     Dosage: UNK
  11. OXYGEN [Concomitant]
     Active Substance: OXYGEN
     Dosage: UNK
  12. DIPHENHYDRAMINE [Concomitant]
     Active Substance: DIPHENHYDRAMINE
     Dosage: UNK
  13. ATENOLOL [Concomitant]
     Active Substance: ATENOLOL
     Dosage: UNK
  14. CETIRIZINE HCL [Concomitant]
     Active Substance: CETIRIZINE HYDROCHLORIDE
     Dosage: UNK
  15. ALPRAZOLAM [Concomitant]
     Active Substance: ALPRAZOLAM
     Dosage: UNK
  16. CYCLOBENZAPRINE HYDROCHLORIDE [Concomitant]
     Active Substance: CYCLOBENZAPRINE HYDROCHLORIDE
     Dosage: UNK
  17. CEFDINIR [Concomitant]
     Active Substance: CEFDINIR
     Dosage: UNK
  18. BENZONATATE [Concomitant]
     Active Substance: BENZONATATE
     Dosage: UNK
  19. AMOXICILLIN\CLAVULANATE POTASSIUM [Concomitant]
     Active Substance: AMOXICILLIN\CLAVULANATE POTASSIUM
     Dosage: UNK
  20. DIPHENHYDRAMINE HYDROCHLORIDE [Concomitant]
     Active Substance: DIPHENHYDRAMINE HYDROCHLORIDE
     Dosage: UNK
  21. Lmx [Concomitant]
     Dosage: UNK
  22. ALBUTEROL SULFATE [Concomitant]
     Active Substance: ALBUTEROL SULFATE
     Dosage: UNK

REACTIONS (9)
  - Pneumonia [Not Recovered/Not Resolved]
  - Cancer in remission [Unknown]
  - Neoplasm malignant [Unknown]
  - Pneumonia bacterial [Not Recovered/Not Resolved]
  - Brain fog [Unknown]
  - Emphysema [Unknown]
  - Lung disorder [Unknown]
  - Decreased appetite [Unknown]
  - Somnolence [Unknown]
